FAERS Safety Report 7415094-9 (Version None)
Quarter: 2011Q2

REPORT INFORMATION
  Report Type: 
  Country: None (occurrence: None)
  Receive Date: 20110414
  Receipt Date: 20110412
  Transmission Date: 20111010
  Serious: Yes (Hospitalization)
  Sender: FDA-Public Use
  Company Number: NL-ROCHE-770830

PATIENT

DRUGS (1)
  1. PEGASYS [Suspect]
     Dosage: MORNING AND AFTERNOON
     Route: 065

REACTIONS (1)
  - MENINGITIS [None]
